FAERS Safety Report 18898300 (Version 1)
Quarter: 2021Q1

REPORT INFORMATION
  Report Type: Spontaneous
  Country: US (occurrence: US)
  Receive Date: 20210216
  Receipt Date: 20210216
  Transmission Date: 20210420
  Serious: No
  Sender: FDA-Public Use
  Company Number: None

PATIENT
  Age: 71 Year
  Sex: Male
  Weight: 109.6 kg

DRUGS (1)
  1. OLANZAPINE 40MG [Suspect]
     Active Substance: OLANZAPINE
     Dates: end: 20210114

REACTIONS (2)
  - Therapy change [None]
  - Neutropenia [None]

NARRATIVE: CASE EVENT DATE: 20210125
